FAERS Safety Report 9830892 (Version 3)
Quarter: 2015Q1

REPORT INFORMATION
  Report Type: Report from Study
  Country: IT (occurrence: IT)
  Receive Date: 20140120
  Receipt Date: 20150303
  Transmission Date: 20150721
  Serious: Yes (Hospitalization)
  Sender: FDA-Public Use
  Company Number: PHHO2014IT000765

PATIENT
  Age: 39 Year
  Sex: Male
  Weight: 55 kg

DRUGS (3)
  1. ICL670A [Suspect]
     Active Substance: DEFERASIROX
     Indication: THALASSAEMIA
     Dosage: 2250 MG, QD
     Route: 048
     Dates: start: 20130819, end: 20140112
  2. PEGASYS [Concomitant]
     Active Substance: PEGINTERFERON ALFA-2A
     Indication: ANTIVIRAL TREATMENT
     Dosage: 130 UG, UNK
     Route: 065
     Dates: start: 20130819, end: 20131201
  3. RIBAVIRIN. [Concomitant]
     Active Substance: RIBAVIRIN
     Indication: ANTIVIRAL TREATMENT
     Dosage: 300 MG, QD
     Route: 065
     Dates: start: 20130819, end: 20140112

REACTIONS (3)
  - Enterocolitis [Recovered/Resolved]
  - Gastrointestinal ulcer [Recovering/Resolving]
  - Haemorrhoids [Recovering/Resolving]

NARRATIVE: CASE EVENT DATE: 20140103
